FAERS Safety Report 18790740 (Version 2)
Quarter: 2021Q1

REPORT INFORMATION
  Report Type: Spontaneous
  Country: US (occurrence: US)
  Receive Date: 20210126
  Receipt Date: 20210331
  Transmission Date: 20210419
  Serious: No
  Sender: FDA-Public Use
  Company Number: US-PFIZER INC-2021051325

PATIENT
  Age: 27 Year
  Sex: Female

DRUGS (1)
  1. XELJANZ XR [Suspect]
     Active Substance: TOFACITINIB CITRATE
     Indication: RHEUMATOID ARTHRITIS
     Dosage: 11 MG, DAILY
     Route: 048
     Dates: start: 20201214, end: 20210216

REACTIONS (4)
  - Product dose omission in error [Unknown]
  - Hypoaesthesia [Unknown]
  - Depression [Unknown]
  - Paraesthesia [Unknown]

NARRATIVE: CASE EVENT DATE: 202012
